FAERS Safety Report 6534975-1 (Version None)
Quarter: 2010Q1

REPORT INFORMATION
  Report Type: 
  Country: None (occurrence: None)
  Receive Date: 20100111
  Receipt Date: 20100111
  Transmission Date: 20100710
  Serious: Yes (Life-Threatening, Hospitalization, Other)
  Sender: FDA-Public Use
  Company Number: None

PATIENT
  Age: 60 Year
  Sex: Male

DRUGS (1)
  1. AZACITIDINE [Suspect]
     Dosage: 176 MG IV DAILY X 5
     Route: 042
     Dates: start: 20090921, end: 20090925

REACTIONS (1)
  - PANCYTOPENIA [None]
